FAERS Safety Report 21556927 (Version 1)
Quarter: 2022Q4

REPORT INFORMATION
  Report Type: Spontaneous
  Country: ES (occurrence: ES)
  Receive Date: 20221104
  Receipt Date: 20221104
  Transmission Date: 20230113
  Serious: Yes (Hospitalization, Other)
  Sender: FDA-Public Use
  Company Number: ES-002147023-NVSC2022ES245794

PATIENT
  Sex: Female

DRUGS (16)
  1. ADALIMUMAB [Suspect]
     Active Substance: ADALIMUMAB
     Indication: Juvenile idiopathic arthritis
     Dosage: UNK
     Route: 065
  2. ADALIMUMAB [Suspect]
     Active Substance: ADALIMUMAB
     Indication: Systemic lupus erythematosus
  3. ETANERCEPT [Suspect]
     Active Substance: ETANERCEPT
     Indication: Juvenile idiopathic arthritis
     Dosage: UNK
     Route: 065
  4. ETANERCEPT [Suspect]
     Active Substance: ETANERCEPT
     Indication: Systemic lupus erythematosus
  5. INFLIXIMAB [Suspect]
     Active Substance: INFLIXIMAB
     Indication: Juvenile idiopathic arthritis
     Dosage: UNK
     Route: 065
  6. INFLIXIMAB [Suspect]
     Active Substance: INFLIXIMAB
     Indication: Systemic lupus erythematosus
  7. CERTOLIZUMAB [Suspect]
     Active Substance: CERTOLIZUMAB
     Indication: Juvenile idiopathic arthritis
     Dosage: UNK
     Route: 065
  8. CERTOLIZUMAB [Suspect]
     Active Substance: CERTOLIZUMAB
     Indication: Systemic lupus erythematosus
  9. TOCILIZUMAB [Suspect]
     Active Substance: TOCILIZUMAB
     Indication: Juvenile idiopathic arthritis
     Dosage: UNK
     Route: 065
  10. TOCILIZUMAB [Suspect]
     Active Substance: TOCILIZUMAB
     Indication: Systemic lupus erythematosus
  11. GOLIMUMAB [Suspect]
     Active Substance: GOLIMUMAB
     Indication: Juvenile idiopathic arthritis
     Dosage: UNK
     Route: 065
  12. GOLIMUMAB [Suspect]
     Active Substance: GOLIMUMAB
     Indication: Systemic lupus erythematosus
  13. ANAKINRA [Suspect]
     Active Substance: ANAKINRA
     Indication: Juvenile idiopathic arthritis
     Dosage: UNK
     Route: 065
  14. ANAKINRA [Suspect]
     Active Substance: ANAKINRA
     Indication: Systemic lupus erythematosus
  15. ABATACEPT [Suspect]
     Active Substance: ABATACEPT
     Indication: Juvenile idiopathic arthritis
     Dosage: UNK
     Route: 065
  16. ABATACEPT [Suspect]
     Active Substance: ABATACEPT
     Indication: Systemic lupus erythematosus

REACTIONS (1)
  - Felty^s syndrome [Unknown]
